FAERS Safety Report 23471259 (Version 1)
Quarter: 2024Q1

REPORT INFORMATION
  Report Type: Other
  Country: None (occurrence: US)
  Receive Date: 20240202
  Receipt Date: 20240202
  Transmission Date: 20240409
  Serious: Yes (Life-Threatening, Hospitalization)
  Sender: FDA-Public Use
  Company Number: US-B.Braun Medical Inc.-2152541

PATIENT
  Sex: Female

DRUGS (7)
  1. CEFEPIME HYDROCHLORIDE AND DEXTROSE [Suspect]
     Active Substance: CEFEPIME HYDROCHLORIDE
     Indication: Antibiotic therapy
  2. METRONIDAZOLE [Suspect]
     Active Substance: METRONIDAZOLE
  3. CLINDAMYCIN [Suspect]
     Active Substance: CLINDAMYCIN
  4. VANCOMYCIN [Suspect]
     Active Substance: VANCOMYCIN
  5. ACETAMINOPHEN [Concomitant]
     Active Substance: ACETAMINOPHEN
  6. SODIUM CHLORIDE [Concomitant]
     Active Substance: SODIUM CHLORIDE
  7. CEFTRIAXONE [Concomitant]
     Active Substance: CEFTRIAXONE\CEFTRIAXONE SODIUM

REACTIONS (1)
  - Acute generalised exanthematous pustulosis [None]
